FAERS Safety Report 9100130 (Version 5)
Quarter: 2013Q3

REPORT INFORMATION
  Report Type: Report from Study
  Country: RS (occurrence: RS)
  Receive Date: 20130215
  Receipt Date: 20130703
  Transmission Date: 20140515
  Serious: Yes (Hospitalization)
  Sender: FDA-Public Use
  Company Number: RS-BRISTOL-MYERS SQUIBB COMPANY-17380353

PATIENT
  Age: 46 Year
  Sex: Male

DRUGS (2)
  1. ARIPIPRAZOLE IM DEPOT [Suspect]
     Indication: SCHIZOPHRENIA
     Route: 030
     Dates: start: 20110825, end: 20121220
  2. LORAZEPAM [Concomitant]
     Dates: start: 20080318

REACTIONS (1)
  - Schizophrenia [Recovered/Resolved]
